FAERS Safety Report 6636061-9 (Version None)
Quarter: 2010Q1

REPORT INFORMATION
  Report Type: 
  Country: None (occurrence: None)
  Receive Date: 20100316
  Receipt Date: 20100305
  Transmission Date: 20100710
  Serious: Yes (Other)
  Sender: FDA-Public Use
  Company Number: PHHY2010FR13777

PATIENT
  Age: 61 Year
  Sex: Female

DRUGS (3)
  1. ZOLEDRONATE T29581++BM [Suspect]
     Indication: METASTASES TO BONE
     Dosage: 1 DF, QMO
     Dates: start: 20090901
  2. TARCEVA [Concomitant]
     Dosage: UNK
     Dates: start: 20080101
  3. INNOHEP [Concomitant]

REACTIONS (1)
  - THROMBOSIS [None]
